FAERS Safety Report 6041873-9 (Version None)
Quarter: 2009Q1

REPORT INFORMATION
  Report Type: 
  Country: None (occurrence: None)
  Receive Date: 20090116
  Receipt Date: 20090113
  Transmission Date: 20090719
  Serious: Yes (Other)
  Sender: FDA-Public Use
  Company Number: JP-BRISTOL-MYERS SQUIBB COMPANY-14467997

PATIENT

DRUGS (4)
  1. VEPESID [Suspect]
     Indication: RETINOBLASTOMA BILATERAL
     Route: 041
  2. PARAPLATIN [Suspect]
     Indication: RETINOBLASTOMA BILATERAL
     Route: 041
  3. ONCOVIN [Suspect]
     Indication: RETINOBLASTOMA BILATERAL
     Route: 042
  4. RADIOTHERAPY [Concomitant]

REACTIONS (1)
  - RHABDOMYOSARCOMA [None]
